FAERS Safety Report 12099894 (Version 1)
Quarter: 2016Q1

REPORT INFORMATION
  Report Type: Spontaneous
  Country: US (occurrence: None)
  Receive Date: 20160219
  Receipt Date: 20160219
  Transmission Date: 20160526
  Serious: No
  Sender: FDA-Public Use
  Company Number: None

PATIENT
  Age: 44 Year
  Sex: Male
  Weight: 70.5 kg

DRUGS (3)
  1. TRAZODONE [Suspect]
     Active Substance: TRAZODONE HYDROCHLORIDE
     Indication: ANXIETY
     Dosage: 1 TAB QHS/BEDTIME ORAL
     Route: 048
     Dates: start: 20160204, end: 20160218
  2. LEXAPRO [Concomitant]
     Active Substance: ESCITALOPRAM OXALATE
  3. PRORANOLO ER [Concomitant]

REACTIONS (1)
  - Erection increased [None]

NARRATIVE: CASE EVENT DATE: 20160218
